FAERS Safety Report 18254017 (Version 2)
Quarter: 2020Q4

REPORT INFORMATION
  Report Type: Report from Study
  Country: US (occurrence: US)
  Receive Date: 20200910
  Receipt Date: 20201016
  Transmission Date: 20210113
  Serious: Yes (Death, Hospitalization)
  Sender: FDA-Public Use
  Company Number: US-JNJFOC-20200902609

PATIENT
  Age: 83 Year
  Sex: Female

DRUGS (12)
  1. FUROSEMIDE. [Concomitant]
     Active Substance: FUROSEMIDE
  2. TADALAFIL. [Concomitant]
     Active Substance: TADALAFIL
  3. CARVEDILOL. [Concomitant]
     Active Substance: CARVEDILOL
  4. CINACALCET. [Concomitant]
     Active Substance: CINACALCET
  5. CALCITRIOL. [Concomitant]
     Active Substance: CALCITRIOL
  6. METOLAZONE. [Concomitant]
     Active Substance: METOLAZONE
  7. LEVOTHYROXINE. [Concomitant]
     Active Substance: LEVOTHYROXINE
  8. VITAMIN D3 [Concomitant]
     Active Substance: CHOLECALCIFEROL
  9. COLCHICINE. [Concomitant]
     Active Substance: COLCHICINE
  10. MACITENTAN [Suspect]
     Active Substance: MACITENTAN
     Indication: PULMONARY HYPERTENSION
     Route: 048
     Dates: start: 201808
  11. FERROUS SULFATE. [Concomitant]
     Active Substance: FERROUS SULFATE
  12. ESTRADIOL. [Concomitant]
     Active Substance: ESTRADIOL

REACTIONS (6)
  - Hyponatraemia [Unknown]
  - Acute kidney injury [Unknown]
  - Fall [Unknown]
  - Cardiac failure congestive [Unknown]
  - Weight increased [Unknown]
  - Cardiac failure [Fatal]
